FAERS Safety Report 16409679 (Version 1)
Quarter: 2019Q2

REPORT INFORMATION
  Report Type: Report from Study
  Country: DE (occurrence: DE)
  Receive Date: 20190610
  Receipt Date: 20190610
  Transmission Date: 20190711
  Serious: Yes (Hospitalization)
  Sender: FDA-Public Use
  Company Number: DE-JNJFOC-20190601990

PATIENT
  Age: 60 Year
  Sex: Female
  Weight: 101 kg

DRUGS (13)
  1. PROTOPIC [Concomitant]
     Active Substance: TACROLIMUS
     Indication: PSORIASIS
     Route: 061
     Dates: start: 20180409
  2. ENSTILAR [Concomitant]
     Active Substance: BETAMETHASONE DIPROPIONATE\CALCIPOTRIENE HYDRATE
     Indication: PSORIATIC ARTHROPATHY
     Route: 061
     Dates: start: 20170322
  3. ENSTILAR [Concomitant]
     Active Substance: BETAMETHASONE DIPROPIONATE\CALCIPOTRIENE HYDRATE
     Indication: PSORIASIS
     Route: 061
     Dates: start: 20170322
  4. OPIPRAMOL [Concomitant]
     Active Substance: OPIPRAMOL
     Indication: ANTIDEPRESSANT THERAPY
     Route: 065
     Dates: start: 201811
  5. STELARA [Suspect]
     Active Substance: USTEKINUMAB
     Indication: PSORIASIS
     Route: 058
     Dates: start: 20171215
  6. METFORMIN [Concomitant]
     Active Substance: METFORMIN HYDROCHLORIDE
     Indication: DIABETES MELLITUS
     Route: 065
  7. PROTOPIC [Concomitant]
     Active Substance: TACROLIMUS
     Indication: PSORIATIC ARTHROPATHY
     Route: 061
     Dates: start: 20180409
  8. DAIVOBET [Concomitant]
     Active Substance: BETAMETHASONE DIPROPIONATE\CALCIPOTRIENE
     Indication: PSORIASIS
     Route: 061
     Dates: start: 20110104
  9. BUDESONIDE. [Concomitant]
     Active Substance: BUDESONIDE
     Indication: ADVERSE EVENT
     Route: 065
     Dates: start: 20190430
  10. EBASTEL [Concomitant]
     Active Substance: EBASTINE
     Indication: HYPERSENSITIVITY
     Route: 065
     Dates: start: 20180605
  11. DAIVOBET [Concomitant]
     Active Substance: BETAMETHASONE DIPROPIONATE\CALCIPOTRIENE
     Indication: PSORIATIC ARTHROPATHY
     Route: 061
     Dates: start: 20110104
  12. ROSUVASTATIN. [Concomitant]
     Active Substance: ROSUVASTATIN
     Indication: HYPERLIPIDAEMIA
     Route: 065
     Dates: start: 201811
  13. INSULIN [Concomitant]
     Active Substance: INSULIN NOS
     Indication: DIABETES MELLITUS
     Route: 065
     Dates: start: 201811

REACTIONS (1)
  - Tumour excision [Recovered/Resolved]

NARRATIVE: CASE EVENT DATE: 20190327
